FAERS Safety Report 25230291 (Version 2)
Quarter: 2025Q3

REPORT INFORMATION
  Report Type: Report from Study
  Country: GB (occurrence: GB)
  Receive Date: 20250423
  Receipt Date: 20250810
  Transmission Date: 20251021
  Serious: Yes (Other)
  Sender: ALEXION PHARMACEUTICALS
  Company Number: GB-AstraZeneca-CH-00850532A

PATIENT
  Age: 79 Year
  Sex: Female

DRUGS (1)
  1. ULTOMIRIS [Suspect]
     Active Substance: RAVULIZUMAB-CWVZ
     Indication: Paroxysmal nocturnal haemoglobinuria
     Dosage: 800 MILLIGRAM, Q8W

REACTIONS (20)
  - Sepsis [Unknown]
  - Diabetes mellitus [Unknown]
  - Hypothermia [Unknown]
  - Hip fracture [Unknown]
  - Drug dependence [Unknown]
  - Alcoholism [Unknown]
  - Poor venous access [Unknown]
  - Fall [Unknown]
  - Balance disorder [Unknown]
  - Gait disturbance [Unknown]
  - Arthritis [Unknown]
  - Asthenia [Unknown]
  - Visual impairment [Unknown]
  - Vertigo [Unknown]
  - Dizziness [Unknown]
  - Incontinence [Unknown]
  - Pollakiuria [Unknown]
  - Angiopathy [Unknown]
  - Cardiac disorder [Unknown]
  - Nervous system disorder [Unknown]

NARRATIVE: CASE EVENT DATE: 20250301
